FAERS Safety Report 6068882-8 (Version None)
Quarter: 2009Q1

REPORT INFORMATION
  Report Type: 
  Country: None (occurrence: None)
  Receive Date: 20090206
  Receipt Date: 20090127
  Transmission Date: 20090719
  Serious: Yes (Other)
  Sender: FDA-Public Use
  Company Number: JP-PFIZER INC-2009163413

PATIENT

DRUGS (11)
  1. ZYVOX [Suspect]
     Dosage: 600 MG, 2X/DAY
     Route: 042
     Dates: start: 20090109, end: 20090119
  2. DIGOSIN [Concomitant]
     Route: 048
  3. LANSOPRAZOLE [Concomitant]
     Route: 048
  4. URSODEOXYCHOLIC ACID [Concomitant]
     Route: 048
  5. SUCRALFATE [Concomitant]
     Route: 048
  6. CLARITHROMYCIN [Concomitant]
     Route: 048
  7. VANCOMYCIN [Concomitant]
     Route: 048
  8. MICAFUNGIN [Concomitant]
     Dosage: UNK
     Route: 042
     Dates: end: 20090110
  9. FUROSEMIDE [Concomitant]
     Dosage: UNK
     Route: 042
     Dates: end: 20090122
  10. VANCOMYCIN [Concomitant]
     Dosage: UNK
     Route: 042
     Dates: end: 20090109
  11. CANDESARTAN [Concomitant]
     Route: 048

REACTIONS (2)
  - BONE MARROW FAILURE [None]
  - HAEMOGLOBIN DECREASED [None]
